FAERS Safety Report 21292349 (Version 1)
Quarter: 2022Q3

REPORT INFORMATION
  Report Type: Report from Study
  Country: US (occurrence: US)
  Receive Date: 20220905
  Receipt Date: 20220905
  Transmission Date: 20221027
  Serious: Yes (Death, Other)
  Sender: FDA-Public Use
  Company Number: US-ACADIA PHARMACEUTICALS INC.-ACA-2022-PIM-002711

PATIENT
  Sex: Female

DRUGS (7)
  1. NUPLAZID [Suspect]
     Active Substance: PIMAVANSERIN TARTRATE
     Indication: Parkinson^s disease
     Dosage: 34 MILLIGRAM, QD
     Route: 048
     Dates: end: 202205
  2. CLOPIDOGREL [Concomitant]
     Active Substance: CLOPIDOGREL BISULFATE
  3. LORATADINE [Concomitant]
     Active Substance: LORATADINE
  4. FUROSEMIDE [Concomitant]
     Active Substance: FUROSEMIDE
  5. LORAZEPAM [Concomitant]
     Active Substance: LORAZEPAM
  6. RANOLAZINE [Concomitant]
     Active Substance: RANOLAZINE
  7. DOCUSATE [Concomitant]
     Active Substance: DOCUSATE

REACTIONS (1)
  - Death [Recovered/Resolved]
